FAERS Safety Report 7951669-6 (Version None)
Quarter: 2011Q4

REPORT INFORMATION
  Report Type: 
  Country: None (occurrence: None)
  Receive Date: 20111201
  Receipt Date: 20111123
  Transmission Date: 20120403
  Serious: Yes (Hospitalization)
  Sender: FDA-Public Use
  Company Number: CH-NOVOPROD-340184

PATIENT

DRUGS (6)
  1. ASPIRIN [Concomitant]
  2. REPAGLINIDE [Suspect]
     Indication: TYPE 2 DIABETES MELLITUS
     Dosage: 3 X 2 MG
     Route: 048
     Dates: end: 20101017
  3. TORSEMIDE [Concomitant]
  4. NORVASC [Concomitant]
  5. IRBESARTAN [Concomitant]
  6. METOLAZON [Concomitant]

REACTIONS (2)
  - SOMNOLENCE [None]
  - HYPOGLYCAEMIA [None]
